FAERS Safety Report 24769970 (Version 3)
Quarter: 2025Q1

REPORT INFORMATION
  Report Type: Spontaneous
  Country: FR (occurrence: FR)
  Receive Date: 20241224
  Receipt Date: 20250221
  Transmission Date: 20250409
  Serious: Yes (Life-Threatening, Hospitalization, Other)
  Sender: GILEAD
  Company Number: FR-GILEAD-2024-0696933

PATIENT
  Age: 61 Year
  Sex: Female
  Weight: 84 kg

DRUGS (2)
  1. TRODELVY [Suspect]
     Active Substance: SACITUZUMAB GOVITECAN-HZIY
     Indication: Triple negative breast cancer
     Route: 042
     Dates: start: 20241015, end: 20241022
  2. TRODELVY [Suspect]
     Active Substance: SACITUZUMAB GOVITECAN-HZIY
     Route: 065
     Dates: start: 20241022

REACTIONS (13)
  - Hypovolaemic shock [Not Recovered/Not Resolved]
  - Diarrhoea [Not Recovered/Not Resolved]
  - Septic shock [Not Recovered/Not Resolved]
  - Pericardial effusion [Recovering/Resolving]
  - General physical health deterioration [Recovering/Resolving]
  - Pyrexia [Recovering/Resolving]
  - Malaise [Recovering/Resolving]
  - Dizziness [Recovering/Resolving]
  - Neutropenia [Not Recovered/Not Resolved]
  - Febrile neutropenia [Recovering/Resolving]
  - Toxicity to various agents [Unknown]
  - Hypotension [Recovering/Resolving]
  - Dyspnoea [Recovering/Resolving]

NARRATIVE: CASE EVENT DATE: 20240101
